FAERS Safety Report 18318932 (Version 1)
Quarter: 2020Q3

REPORT INFORMATION
  Report Type: Report from Study
  Country: None (occurrence: RU)
  Receive Date: 20200928
  Receipt Date: 20200928
  Transmission Date: 20201103
  Serious: Yes (Other)
  Sender: FDA-Public Use
  Company Number: RU-COEPTIS PHARMACEUTICALS, INC.-COE-2020-000042

PATIENT

DRUGS (3)
  1. AMLODIPINE [Suspect]
     Active Substance: AMLODIPINE BESYLATE
     Indication: ATRIAL FIBRILLATION
  2. RIVAROXABAN [Interacting]
     Active Substance: RIVAROXABAN
  3. RIVAROXABAN [Interacting]
     Active Substance: RIVAROXABAN
     Indication: ISCHAEMIC STROKE

REACTIONS (5)
  - Uterine haemorrhage [Unknown]
  - Gastrointestinal haemorrhage [Unknown]
  - Haematuria [Unknown]
  - Epistaxis [Unknown]
  - Drug interaction [Unknown]
